FAERS Safety Report 7213041-6 (Version None)
Quarter: 2011Q1

REPORT INFORMATION
  Report Type: 
  Country: None (occurrence: None)
  Receive Date: 20110106
  Receipt Date: 20101227
  Transmission Date: 20110831
  Serious: Yes (Other)
  Sender: FDA-Public Use
  Company Number: B0690752A

PATIENT
  Age: 53 Year
  Sex: Male

DRUGS (2)
  1. ADEFOVIR DIPIVOXIL KIT [Suspect]
     Dosage: 10MG PER DAY
     Route: 065
     Dates: start: 20061001
  2. LAMIVUDINE [Suspect]
     Dosage: 10MG PER DAY
     Route: 065
     Dates: start: 19970401, end: 20061001

REACTIONS (11)
  - RENAL INJURY [None]
  - HYPERURICAEMIA [None]
  - HAEMATURIA [None]
  - HYPOPHOSPHATAEMIA [None]
  - DIABETES MELLITUS [None]
  - DRUG INEFFECTIVE [None]
  - METABOLIC ACIDOSIS [None]
  - PROTEINURIA [None]
  - ASTHENIA [None]
  - RENAL TUBULAR NECROSIS [None]
  - HYPOKALAEMIA [None]
